FAERS Safety Report 8295326-8 (Version None)
Quarter: 2012Q2

REPORT INFORMATION
  Report Type: 
  Country: None (occurrence: None)
  Receive Date: 20120418
  Receipt Date: 20120327
  Transmission Date: 20120825
  Serious: Yes (Other)
  Sender: FDA-Public Use
  Company Number: HU-BAXTER-2012BAX001992

PATIENT
  Age: 67 Year
  Sex: Male

DRUGS (2)
  1. DIANEAL PD-1 W/ DEXTROSE 1.5% IN PLASTIC CONTAINER [Suspect]
     Route: 033
     Dates: start: 20061228
  2. DIANEAL PD-1 W/ DEXTROSE 1.5% IN PLASTIC CONTAINER [Suspect]
     Route: 033
     Dates: start: 20061228

REACTIONS (1)
  - PERITONITIS BACTERIAL [None]
